FAERS Safety Report 9252686 (Version 1)
Quarter: 2013Q2

REPORT INFORMATION
  Report Type: Spontaneous
  Country: US (occurrence: US)
  Receive Date: 20130424
  Receipt Date: 20130424
  Transmission Date: 20140414
  Serious: Yes (Hospitalization, Other)
  Sender: FDA-Public Use
  Company Number: US-ELI_LILLY_AND_COMPANY-US201304004804

PATIENT
  Age: 69 Year
  Sex: Female

DRUGS (16)
  1. FORTEO [Suspect]
     Indication: OSTEOPOROSIS
     Dosage: UNK UNK, QD
     Dates: start: 20130218
  2. LISINOPRIL [Concomitant]
     Indication: BLOOD PRESSURE INCREASED
     Dosage: 2.5 MG, BID
  3. LISINOPRIL [Concomitant]
     Dosage: 10 MG, BID
  4. LISINOPRIL [Concomitant]
     Dosage: 20 MG, BID
  5. OMEPRAZOLE [Concomitant]
  6. MONTELUKAST [Concomitant]
  7. SYMBICORT [Concomitant]
  8. PROAIR HFA [Concomitant]
  9. NAPROXYN [Concomitant]
  10. TIZANIDINE [Concomitant]
  11. TRAMADOL [Concomitant]
  12. PILOCARPINE [Concomitant]
  13. LASIX [Concomitant]
  14. POTASSIUM CHLORIDE [Concomitant]
  15. CITRACAL + D [Concomitant]
  16. VITAMIN D [Concomitant]

REACTIONS (6)
  - Blood pressure increased [Unknown]
  - Open fracture [Unknown]
  - Spinal compression fracture [Unknown]
  - Nodule [Unknown]
  - Injection site bruising [Unknown]
  - Heart rate increased [Unknown]
